FAERS Safety Report 4507694-0 (Version None)
Quarter: 2004Q4

REPORT INFORMATION
  Report Type: 
  Country: None (occurrence: None)
  Receive Date: 20041122
  Receipt Date: 20041118
  Transmission Date: 20050328
  Serious: Yes (Hospitalization, Other)
  Sender: FDA-Public Use
  Company Number: 003593

PATIENT
  Age: 75 Year
  Sex: Female

DRUGS (6)
  1. AMILORIDE HCL + HYDROCHLOROTHIAZIDE(AMILORIDE HYDROCHLORIDE, HYDROCHLO [Suspect]
     Indication: BLOOD PRESSURE
     Dosage: 1.00 TABLET, BID, ORAL
     Route: 048
     Dates: start: 20041110, end: 20041115
  2. COUMADIN [Concomitant]
  3. ALBUTEROL [Concomitant]
  4. ZOLOFT [Concomitant]
  5. NORVASC [Concomitant]
  6. ACTOS /USA/ (PIOGLITAZONE HYDROCHLORIDE) [Concomitant]

REACTIONS (8)
  - BLOOD GLUCOSE DECREASED [None]
  - BLOOD POTASSIUM DECREASED [None]
  - BLOOD PRESSURE DECREASED [None]
  - CHEST PAIN [None]
  - INTERNATIONAL NORMALISED RATIO DECREASED [None]
  - LOSS OF CONSCIOUSNESS [None]
  - MEDICATION ERROR [None]
  - MUSCLE CRAMP [None]
